FAERS Safety Report 15250253 (Version 1)
Quarter: 2018Q3

REPORT INFORMATION
  Report Type: Spontaneous
  Country: US (occurrence: US)
  Receive Date: 20180807
  Receipt Date: 20180807
  Transmission Date: 20181010
  Serious: No
  Sender: FDA-Public Use
  Company Number: US-GUERBET-US-20180093

PATIENT
  Age: 40 Year
  Sex: Female
  Weight: 63.9 kg

DRUGS (1)
  1. DOTAREM [Suspect]
     Active Substance: GADOTERATE MEGLUMINE
     Indication: NUCLEAR MAGNETIC RESONANCE IMAGING BRAIN
     Route: 042
     Dates: start: 20180331, end: 20180331

REACTIONS (3)
  - Pruritus [Recovered/Resolved]
  - Throat irritation [Recovered/Resolved]
  - Erythema [Recovered/Resolved]

NARRATIVE: CASE EVENT DATE: 20180331
